FAERS Safety Report 5352262-4 (Version None)
Quarter: 2007Q2

REPORT INFORMATION
  Report Type: 
  Country: None (occurrence: None)
  Receive Date: 20070611
  Receipt Date: 20070529
  Transmission Date: 20071010
  Serious: Yes (Hospitalization)
  Sender: FDA-Public Use
  Company Number: FR-AVENTIS-200711804FR

PATIENT
  Age: 66 Year
  Sex: Female
  Weight: 84 kg

DRUGS (7)
  1. LOVENOX [Suspect]
     Indication: ACUTE CORONARY SYNDROME
     Route: 058
     Dates: start: 20070214, end: 20070224
  2. PLAVIX [Suspect]
     Indication: ACUTE CORONARY SYNDROME
     Route: 048
     Dates: start: 20070214, end: 20070222
  3. TAHOR [Suspect]
     Route: 048
     Dates: start: 20070214, end: 20070222
  4. TENORMIN [Concomitant]
     Route: 048
  5. RAMIPRIL [Concomitant]
     Route: 048
     Dates: end: 20070215
  6. HUMALOG [Concomitant]
     Route: 058
  7. INSULATARD                         /00646002/ [Concomitant]
     Route: 058

REACTIONS (3)
  - HEPATITIS [None]
  - HEPATOCELLULAR DAMAGE [None]
  - THROMBOCYTOPENIA [None]
